FAERS Safety Report 9596278 (Version 2)
Quarter: 2013Q4

REPORT INFORMATION
  Report Type: Report from Study
  Country: US (occurrence: US)
  Receive Date: 20131004
  Receipt Date: 20131119
  Transmission Date: 20140711
  Serious: Yes (Death)
  Sender: FDA-Public Use
  Company Number: US-ACTELION-A-NJ2013-89179

PATIENT
  Age: 61 Year
  Sex: Female

DRUGS (2)
  1. VELETRI [Suspect]
     Indication: PULMONARY ARTERIAL HYPERTENSION
     Dosage: 18 NG/KG, PER MIN
     Route: 042
     Dates: start: 20120126, end: 201308
  2. SILDENAFIL [Concomitant]

REACTIONS (2)
  - Death [Fatal]
  - Condition aggravated [Unknown]
